FAERS Safety Report 24567238 (Version 2)
Quarter: 2024Q4

REPORT INFORMATION
  Report Type: Report from Study
  Country: JP (occurrence: JP)
  Receive Date: 20241030
  Receipt Date: 20241118
  Transmission Date: 20250115
  Serious: Yes (Life-Threatening, Hospitalization, Other)
  Sender: ALEXION PHARMACEUTICALS
  Company Number: JP-ASTRAZENECA-240010216_013120_P_1

PATIENT
  Age: 45 Year
  Weight: 84 kg

DRUGS (18)
  1. DURVALUMAB [Suspect]
     Active Substance: DURVALUMAB
     Indication: Non-small cell lung cancer
     Dosage: 1500 MILLIGRAM, Q4W
  2. DURVALUMAB [Suspect]
     Active Substance: DURVALUMAB
     Dosage: 1500 MILLIGRAM, Q4W
  3. TREMELIMUMAB [Suspect]
     Active Substance: TREMELIMUMAB
     Indication: Non-small cell lung cancer
     Dosage: 75 MILLIGRAM, Q4W
  4. TREMELIMUMAB [Suspect]
     Active Substance: TREMELIMUMAB
     Dosage: 75 MILLIGRAM, Q4W
  5. CISPLATIN [Suspect]
     Active Substance: CISPLATIN
     Indication: Non-small cell lung cancer
     Dosage: NUMBER OF SEPARATE DOSAGES UNKNOWN
  6. CISPLATIN [Suspect]
     Active Substance: CISPLATIN
     Dosage: NUMBER OF SEPARATE DOSAGES UNKNOWN
     Route: 065
  7. DOCETAXEL [Suspect]
     Active Substance: DOCETAXEL
     Indication: Non-small cell lung cancer
     Dosage: 124.5   MILLIGRAMS
  8. DOCETAXEL [Suspect]
     Active Substance: DOCETAXEL
     Dosage: 124.5   MILLIGRAMS
     Route: 065
  9. CYRAMZA [Suspect]
     Active Substance: RAMUCIRUMAB
     Indication: Non-small cell lung cancer
     Dosage: 903.5 MILLIGRAM
  10. CYRAMZA [Suspect]
     Active Substance: RAMUCIRUMAB
     Dosage: 903.5 MILLIGRAM
     Route: 065
  11. PEMETREXED [Concomitant]
     Active Substance: PEMETREXED
     Indication: Non-small cell lung cancer
     Dosage: 1010 MILLIGRAM
     Route: 065
  12. PEMETREXED [Concomitant]
     Active Substance: PEMETREXED
     Dosage: 1010 MILLIGRAM
  13. PEMETREXED [Concomitant]
     Active Substance: PEMETREXED
     Dosage: 1010 MILLIGRAM
     Route: 065
  14. PEMETREXED [Concomitant]
     Active Substance: PEMETREXED
     Dosage: 1010 MILLIGRAM
  15. CARBOPLATIN [Concomitant]
     Active Substance: CARBOPLATIN
     Indication: Non-small cell lung cancer
     Dosage: 710 MILLIGRAM
     Route: 065
  16. CARBOPLATIN [Concomitant]
     Active Substance: CARBOPLATIN
     Dosage: 710 MILLIGRAM
  17. CARBOPLATIN [Concomitant]
     Active Substance: CARBOPLATIN
     Dosage: 710 MILLIGRAM
     Route: 065
  18. CARBOPLATIN [Concomitant]
     Active Substance: CARBOPLATIN
     Dosage: 710 MILLIGRAM

REACTIONS (3)
  - Anal abscess [Recovered/Resolved]
  - Decreased appetite [Recovered/Resolved]
  - Infusion related reaction [Recovered/Resolved]
